FAERS Safety Report 5684191-0 (Version None)
Quarter: 2008Q1

REPORT INFORMATION
  Report Type: 
  Country: None (occurrence: None)
  Receive Date: 20080328
  Receipt Date: 20080321
  Transmission Date: 20080703
  Serious: Yes (Other)
  Sender: FDA-Public Use
  Company Number: US-GENENTECH-258188

PATIENT
  Sex: Female
  Weight: 109.75 kg

DRUGS (1)
  1. XOLAIR [Suspect]
     Indication: ASTHMA
     Dosage: 225 UNIT, Q2W
     Route: 058
     Dates: start: 20071221, end: 20080201

REACTIONS (2)
  - DIZZINESS [None]
  - HYPOACUSIS [None]
